FAERS Safety Report 8836815 (Version 1)
Quarter: 2012Q4

REPORT INFORMATION
  Report Type: 
  Country: US (occurrence: US)
  Receive Date: 20121012
  Receipt Date: 20121012
  Transmission Date: 20130627
  Serious: Yes (Hospitalization, Other)
  Sender: FDA-Public Use
  Company Number: US-PFIZER INC-2012251395

PATIENT
  Age: 82 Year
  Sex: Male
  Weight: 57.6 kg

DRUGS (2)
  1. REVATIO [Suspect]
     Indication: HEART RATE IRREGULAR
     Dosage: UNK, 3x/day
     Dates: start: 2011
  2. REVATIO [Suspect]
     Indication: ANGIOPATHY

REACTIONS (3)
  - Volvulus of small bowel [Recovered/Resolved]
  - Pneumonia [Not Recovered/Not Resolved]
  - Pulmonary oedema [Not Recovered/Not Resolved]
